FAERS Safety Report 22531495 (Version 2)
Quarter: 2023Q2

REPORT INFORMATION
  Report Type: Spontaneous
  Country: US (occurrence: US)
  Receive Date: 20230607
  Receipt Date: 20230607
  Transmission Date: 20230722
  Serious: No
  Sender: FDA-Public Use
  Company Number: US-PFIZER INC-202300210421

PATIENT
  Age: 68 Year
  Sex: Female
  Weight: 56.7 kg

DRUGS (18)
  1. NURTEC ODT [Suspect]
     Active Substance: RIMEGEPANT SULFATE
     Indication: Migraine
     Dosage: UNK
  2. ZONISAMIDE [Concomitant]
     Active Substance: ZONISAMIDE
     Indication: Migraine
     Dosage: 50 MG, 1X/DAY
  3. METOPROLOL [Concomitant]
     Active Substance: METOPROLOL
     Dosage: 25 MG, 1X/DAY
  4. MAGNESIUM [Concomitant]
     Active Substance: MAGNESIUM
     Dosage: 250 MG
  5. COENZYME Q10 [Concomitant]
     Active Substance: DIETARY SUPPLEMENT\UBIDECARENONE
     Indication: Migraine
     Dosage: 100 MG
  6. CHOLECALCIFEROL [Concomitant]
     Active Substance: CHOLECALCIFEROL
     Indication: Migraine
     Dosage: 1000 MG
  7. VITAMIN B [Concomitant]
     Active Substance: VITAMIN B
     Dosage: UNK
  8. MOVE FREE ULTRA [Concomitant]
     Indication: Arthritis
     Dosage: UNK
  9. EUFLEXXA [Concomitant]
     Active Substance: HYALURONATE SODIUM
     Dosage: UNK (TWICE A YEAR)
  10. ZOMIG [Concomitant]
     Active Substance: ZOLMITRIPTAN
     Indication: Migraine
     Dosage: UNK, AS NEEDED
  11. ZOMIG [Concomitant]
     Active Substance: ZOLMITRIPTAN
     Indication: Migraine
     Dosage: UNK, AS NEEDED
  12. ACETAMINOPHEN\ASPIRIN\CAFFEINE\SALICYLAMIDE [Concomitant]
     Active Substance: ACETAMINOPHEN\ASPIRIN\CAFFEINE\SALICYLAMIDE
     Indication: Migraine
     Dosage: UNK, AS NEEDED
  13. IBUPROFEN [Concomitant]
     Active Substance: IBUPROFEN
     Indication: Migraine
     Dosage: 200 MG, AS NEEDED
  14. TYLENOL [Concomitant]
     Active Substance: ACETAMINOPHEN
     Indication: Migraine
     Dosage: 500 MG, AS NEEDED
  15. PROPRANOLOL [Concomitant]
     Active Substance: PROPRANOLOL HYDROCHLORIDE
     Indication: Anxiety
     Dosage: UNK, AS NEEDED
  16. PROPRANOLOL [Concomitant]
     Active Substance: PROPRANOLOL HYDROCHLORIDE
     Indication: Migraine
  17. LIDOCAINE [Concomitant]
     Active Substance: LIDOCAINE
     Indication: Migraine
     Dosage: 4 %, AS NEEDED
  18. LIDOCAINE [Concomitant]
     Active Substance: LIDOCAINE
     Dosage: 0.1 %, AS NEEDED

REACTIONS (7)
  - Swollen tongue [Unknown]
  - Pharyngeal hypoaesthesia [Unknown]
  - Nausea [Unknown]
  - Dysgeusia [Unknown]
  - Hypoaesthesia oral [Unknown]
  - Paraesthesia oral [Unknown]
  - Lack of spontaneous speech [Unknown]
